FAERS Safety Report 13621065 (Version 4)
Quarter: 2017Q2

REPORT INFORMATION
  Report Type: Report from Study
  Country: US (occurrence: US)
  Receive Date: 20170607
  Receipt Date: 20170628
  Transmission Date: 20170830
  Serious: Yes (Other)
  Sender: FDA-Public Use
  Company Number: US-AMGEN-USASP2017085019

PATIENT
  Age: 56 Year
  Sex: Female
  Weight: 54.42 kg

DRUGS (7)
  1. KLONOPIN [Concomitant]
     Active Substance: CLONAZEPAM
     Indication: ANXIETY
     Dosage: 0.5 MG, PRN
     Route: 048
  2. RESTORIL [Concomitant]
     Active Substance: TEMAZEPAM
     Indication: INSOMNIA
     Dosage: 7.5 MG, QHS
     Route: 048
     Dates: start: 20170509
  3. KLONOPIN [Concomitant]
     Active Substance: CLONAZEPAM
     Indication: OBSESSIVE-COMPULSIVE DISORDER
  4. ENBREL [Suspect]
     Active Substance: ETANERCEPT
     Indication: ANKYLOSING SPONDYLITIS
     Dosage: 50 MG, QWK
     Route: 058
     Dates: start: 201705
  5. ESTRADIOL. [Concomitant]
     Active Substance: ESTRADIOL
     Dosage: 0.25 MG, QD
     Route: 048
     Dates: start: 20170509
  6. ATIVAN [Concomitant]
     Active Substance: LORAZEPAM
     Indication: ANXIETY
     Dosage: 1 MG, PRN
     Route: 048
  7. ATIVAN [Concomitant]
     Active Substance: LORAZEPAM
     Indication: OBSESSIVE-COMPULSIVE DISORDER

REACTIONS (45)
  - Vagus nerve disorder [Unknown]
  - Ankylosing spondylitis [Unknown]
  - Platelet count decreased [Unknown]
  - Fibromyalgia [Unknown]
  - Dry eye [Unknown]
  - Dysuria [Unknown]
  - Nail disorder [Unknown]
  - Temperature intolerance [Unknown]
  - Injection site urticaria [Not Recovered/Not Resolved]
  - Urinary tract infection [Unknown]
  - Asthenia [Unknown]
  - Cardiac murmur [Unknown]
  - Palpitations [Unknown]
  - Micturition urgency [Unknown]
  - Pruritus [Unknown]
  - Hair disorder [Unknown]
  - Stress [Unknown]
  - Injection site reaction [Unknown]
  - Injection site pruritus [Not Recovered/Not Resolved]
  - Fatigue [Unknown]
  - Wrong technique in product usage process [Unknown]
  - Lymphadenopathy [Unknown]
  - Haemorrhagic diathesis [Unknown]
  - Vision blurred [Unknown]
  - Sinusitis [Unknown]
  - Drug hypersensitivity [Unknown]
  - Dizziness [Unknown]
  - Eye discharge [Unknown]
  - Vulvovaginal dryness [Unknown]
  - Anaemia [Unknown]
  - Injection site erythema [Not Recovered/Not Resolved]
  - Night sweats [Unknown]
  - Hot flush [Unknown]
  - Illness anxiety disorder [Unknown]
  - Epstein-Barr virus infection [Unknown]
  - Pollakiuria [Unknown]
  - Hyperhidrosis [Unknown]
  - Contusion [Unknown]
  - Underdose [Unknown]
  - Urticaria [Unknown]
  - Injection site swelling [Not Recovered/Not Resolved]
  - Depression [Unknown]
  - Dyspareunia [Unknown]
  - Dry skin [Unknown]
  - Thirst [Unknown]

NARRATIVE: CASE EVENT DATE: 2017
